FAERS Safety Report 20999305 (Version 1)
Quarter: 2022Q2

REPORT INFORMATION
  Report Type: Report from Study
  Country: CA (occurrence: CA)
  Receive Date: 20220623
  Receipt Date: 20220623
  Transmission Date: 20220720
  Serious: Yes (Other)
  Sender: FDA-Public Use
  Company Number: CA-PFIZER INC-202200845401

PATIENT
  Age: 5 Decade
  Sex: Male

DRUGS (2)
  1. METHOTREXATE SODIUM [Suspect]
     Active Substance: METHOTREXATE SODIUM
     Indication: Corneal epithelial downgrowth
     Dosage: 800 UG/0.2 ML (2 DOSES/IN A WEEK)
     Route: 031
  2. METHOTREXATE SODIUM [Suspect]
     Active Substance: METHOTREXATE SODIUM
     Dosage: 400 UG/0.1 ML 2X/WEEK,  FOR 4 WKS, THEN ONCE WEEKLY FOR 8 WKS, THEN 1X/MONTH FOR 9 MONTHS
     Route: 031

REACTIONS (3)
  - Retinal pigment epitheliopathy [Unknown]
  - Retinal artery occlusion [Unknown]
  - Limbal stem cell deficiency [Unknown]
